FAERS Safety Report 23841826 (Version 1)
Quarter: 2024Q2

REPORT INFORMATION
  Report Type: Spontaneous
  Country: US (occurrence: US)
  Receive Date: 20240510
  Receipt Date: 20240510
  Transmission Date: 20240716
  Serious: Yes (Hospitalization)
  Sender: FDA-Public Use
  Company Number: US-002147023-NVSC2024US098651

PATIENT
  Sex: Female

DRUGS (1)
  1. PROMACTA [Suspect]
     Active Substance: ELTROMBOPAG OLAMINE
     Indication: Aplastic anaemia
     Dosage: 75 MG, BID
     Route: 048
     Dates: start: 201812

REACTIONS (3)
  - Influenza [Unknown]
  - Full blood count decreased [Unknown]
  - Dehydration [Unknown]
